FAERS Safety Report 12162791 (Version 3)
Quarter: 2016Q4

REPORT INFORMATION
  Report Type: Report from Study
  Country: JP (occurrence: JP)
  Receive Date: 20160309
  Receipt Date: 20161021
  Transmission Date: 20170207
  Serious: Yes (Death)
  Sender: FDA-Public Use
  Company Number: JP-AMGEN-JPNSP2016029269

PATIENT
  Age: 85 Year
  Sex: Male

DRUGS (1)
  1. DARBEPOETIN ALFA [Suspect]
     Active Substance: DARBEPOETIN ALFA
     Indication: MYELODYSPLASTIC SYNDROME
     Dosage: 120 MUG, UNK
     Route: 058
     Dates: start: 20160225, end: 20160225

REACTIONS (2)
  - Marasmus [Fatal]
  - Dehydration [Fatal]

NARRATIVE: CASE EVENT DATE: 201602
